FAERS Safety Report 15363387 (Version 4)
Quarter: 2018Q4

REPORT INFORMATION
  Report Type: Report from Study
  Country: US (occurrence: US)
  Receive Date: 20180907
  Receipt Date: 20181003
  Transmission Date: 20190204
  Serious: Yes (Hospitalization)
  Sender: FDA-Public Use
  Company Number: US-ACTELION-A-NJ2018-178215

PATIENT
  Age: 53 Year
  Sex: Male
  Weight: 112.2 kg

DRUGS (1)
  1. VELETRI [Suspect]
     Active Substance: EPOPROSTENOL
     Indication: PULMONARY ARTERIAL HYPERTENSION
     Dosage: 11 NG/KG, PER MIN
     Route: 042

REACTIONS (7)
  - Paraesthesia [Unknown]
  - Fluid retention [Unknown]
  - Device malfunction [Recovered/Resolved]
  - Penile oedema [Unknown]
  - Pain in jaw [Unknown]
  - Dizziness [Unknown]
  - Hypotension [Unknown]
